FAERS Safety Report 6178171-9 (Version None)
Quarter: 2009Q2

REPORT INFORMATION
  Report Type: 
  Country: None (occurrence: None)
  Receive Date: 20090504
  Receipt Date: 20090422
  Transmission Date: 20091009
  Serious: Yes (Other)
  Sender: FDA-Public Use
  Company Number: PHHY2009JP15644

PATIENT
  Age: 68 Year
  Sex: Male

DRUGS (3)
  1. DIOVAN [Suspect]
     Indication: HYPERTENSION
     Dosage: 80 MG, QD
     Route: 048
     Dates: start: 20070101, end: 20090410
  2. ADALAT CC [Concomitant]
     Dosage: UNK
     Route: 048
     Dates: start: 20070101
  3. FLUITRAN [Concomitant]
     Dosage: UNK
     Route: 048
     Dates: start: 20070101

REACTIONS (2)
  - BLOOD CREATINE PHOSPHOKINASE INCREASED [None]
  - MYOGLOBIN BLOOD INCREASED [None]
